FAERS Safety Report 12183689 (Version 1)
Quarter: 2016Q1

REPORT INFORMATION
  Report Type: Spontaneous
  Country: FR (occurrence: FR)
  Receive Date: 20160316
  Receipt Date: 20160316
  Transmission Date: 20160526
  Serious: Yes (Other)
  Sender: FDA-Public Use
  Company Number: FR-PFIZER INC-2016156979

PATIENT

DRUGS (1)
  1. MINIDRIL [Suspect]
     Active Substance: ETHINYL ESTRADIOL\LEVONORGESTREL
     Indication: CONTRACEPTION
     Dosage: ETHINYLESTRADIOL 30UG/ LEVONORGESTREL 150UG
     Route: 064

REACTIONS (2)
  - Maternal exposure during pregnancy [Unknown]
  - Kidney malformation [Unknown]
